FAERS Safety Report 5837009-7 (Version None)
Quarter: 2008Q3

REPORT INFORMATION
  Report Type: 
  Country: None (occurrence: None)
  Receive Date: 20080807
  Receipt Date: 20080729
  Transmission Date: 20090109
  Serious: Yes (Other)
  Sender: FDA-Public Use
  Company Number: FR-ROCHE-578719

PATIENT
  Age: 55 Year
  Sex: Female

DRUGS (1)
  1. RIVOTRIL [Suspect]
     Route: 065

REACTIONS (2)
  - ANAEMIA [None]
  - RECTAL HAEMORRHAGE [None]
